FAERS Safety Report 8248433-X (Version None)
Quarter: 2012Q1

REPORT INFORMATION
  Report Type: 
  Country: None (occurrence: None)
  Receive Date: 20120330
  Receipt Date: 20120321
  Transmission Date: 20120608
  Serious: Yes (Hospitalization)
  Sender: FDA-Public Use
  Company Number: BR-ASTRAZENECA-2012SE19561

PATIENT
  Age: 64 Year
  Sex: Male
  Weight: 77 kg

DRUGS (4)
  1. LOSARTAN POTASSIUM [Concomitant]
     Route: 048
     Dates: start: 20050101
  2. CRESTOR [Suspect]
     Indication: BLOOD CHOLESTEROL INCREASED
     Route: 048
     Dates: start: 20050101
  3. BRILINTA [Suspect]
     Indication: DEVICE OCCLUSION
     Route: 048
     Dates: start: 20120314
  4. ASPIRIN [Concomitant]
     Route: 048
     Dates: start: 20050101

REACTIONS (3)
  - CORONARY ARTERY OCCLUSION [None]
  - SKIN EXFOLIATION [None]
  - OFF LABEL USE [None]
